FAERS Safety Report 9589712 (Version 1)
Quarter: 2013Q4

REPORT INFORMATION
  Report Type: Spontaneous
  Country: US (occurrence: US)
  Receive Date: 20131003
  Receipt Date: 20131003
  Transmission Date: 20140711
  Serious: No
  Sender: FDA-Public Use
  Company Number: US-AMGEN-USASP2012072071

PATIENT
  Age: 44 Year
  Sex: Female

DRUGS (5)
  1. ENBREL [Suspect]
     Indication: PRODUCT USED FOR UNKNOWN INDICATION
     Dosage: 50 MG, QWK
     Route: 058
  2. VITAMIN C                          /00008001/ [Concomitant]
     Dosage: 500 MG, UNK
  3. PREDNISONE [Concomitant]
     Dosage: 50 MG, UNK
  4. VICODIN [Concomitant]
     Dosage: 5-500MG
  5. MULTIMIX [Concomitant]
     Dosage: UNK

REACTIONS (1)
  - Sinusitis [Unknown]
